FAERS Safety Report 7067397-8 (Version None)
Quarter: 2010Q4

REPORT INFORMATION
  Report Type: 
  Country: None (occurrence: None)
  Receive Date: 20101026
  Receipt Date: 20101026
  Transmission Date: 20110411
  Serious: Yes (Other)
  Sender: FDA-Public Use
  Company Number: None

PATIENT

DRUGS (1)
  1. VALTURNA [Suspect]
     Indication: BLOOD PRESSURE
     Dosage: 1 AT BEDTIME PO
     Route: 048
     Dates: start: 20101002, end: 20101013

REACTIONS (6)
  - DRUG INEFFECTIVE [None]
  - HYPERSENSITIVITY [None]
  - NERVE INJURY [None]
  - OEDEMA PERIPHERAL [None]
  - PAIN IN EXTREMITY [None]
  - SCREAMING [None]
